FAERS Safety Report 9563657 (Version 1)
Quarter: 2013Q3

REPORT INFORMATION
  Report Type: Spontaneous
  Country: US (occurrence: None)
  Receive Date: 20130926
  Receipt Date: 20130926
  Transmission Date: 20140515
  Serious: No
  Sender: FDA-Public Use
  Company Number: None

PATIENT
  Age: 84 Year
  Sex: 0
  Weight: 95.5 kg

DRUGS (1)
  1. AFLIBERCEPT [Suspect]
     Dosage: .05 ML ONCE EYE
     Dates: start: 20130702, end: 20130702

REACTIONS (3)
  - Ocular hyperaemia [None]
  - Eye pain [None]
  - Eye pruritus [None]
